FAERS Safety Report 8967012 (Version 1)
Quarter: 2012Q4

REPORT INFORMATION
  Report Type: 
  Country: MX (occurrence: MX)
  Receive Date: 20121217
  Receipt Date: 20121217
  Transmission Date: 20130627
  Serious: Yes (Other)
  Sender: FDA-Public Use
  Company Number: PHHY2012MX115376

PATIENT
  Sex: Female

DRUGS (1)
  1. RASILEZ [Suspect]
     Indication: HYPERTENSION
     Dosage: 150 mg, daily
     Route: 048

REACTIONS (3)
  - Embolism [Not Recovered/Not Resolved]
  - Cardiovascular disorder [Unknown]
  - Nervous system disorder [Not Recovered/Not Resolved]
